FAERS Safety Report 13843833 (Version 5)
Quarter: 2018Q1

REPORT INFORMATION
  Report Type: Report from Study
  Country: CA (occurrence: CA)
  Receive Date: 20170808
  Receipt Date: 20180221
  Transmission Date: 20180508
  Serious: Yes (Hospitalization, Other)
  Sender: FDA-Public Use
  Company Number: PHHY2016CA118687

PATIENT
  Age: 75 Year
  Sex: Male

DRUGS (6)
  1. AFINITOR [Suspect]
     Active Substance: EVEROLIMUS
     Indication: PRODUCT USED FOR UNKNOWN INDICATION
     Route: 048
  2. VALSARTAN. [Concomitant]
     Active Substance: VALSARTAN
     Indication: PRODUCT USED FOR UNKNOWN INDICATION
     Dosage: 160 MG/12.5 MG
     Route: 065
     Dates: start: 2016, end: 2016
  3. SANDOSTATIN LAR DEPOT [Suspect]
     Active Substance: OCTREOTIDE ACETATE
     Dosage: 60 MG, UNK
     Route: 030
  4. LAX-A-DAY [Concomitant]
     Indication: PRODUCT USED FOR UNKNOWN INDICATION
     Route: 065
  5. SANDOSTATIN LAR DEPOT [Suspect]
     Active Substance: OCTREOTIDE ACETATE
     Indication: CARCINOID TUMOUR
     Dosage: 30 MG, QMO (EVERY 4 WEEKS)
     Route: 030
     Dates: start: 20160824
  6. RAMIPRIL. [Concomitant]
     Active Substance: RAMIPRIL
     Indication: PRODUCT USED FOR UNKNOWN INDICATION
     Dosage: 10 MG, UNK
     Route: 065

REACTIONS (11)
  - Musculoskeletal pain [Unknown]
  - Dizziness [Unknown]
  - Pulmonary embolism [Unknown]
  - Blood pressure increased [Unknown]
  - Haemorrhage [Unknown]
  - Blood pressure systolic increased [Unknown]
  - Nausea [Unknown]
  - Myalgia [Unknown]
  - Influenza [Unknown]
  - Malignant neoplasm progression [Unknown]
  - Vomiting [Unknown]

NARRATIVE: CASE EVENT DATE: 20160825
